FAERS Safety Report 5674080-X (Version None)
Quarter: 2008Q2

REPORT INFORMATION
  Report Type: 
  Country: None (occurrence: None)
  Receive Date: 20080227
  Receipt Date: 20070827
  Transmission Date: 20081010
  Serious: Yes (Other)
  Sender: FDA-Public Use
  Company Number: 2007-163517-NL

PATIENT
  Age: 79 Year
  Sex: Female
  Weight: 44 kg

DRUGS (10)
  1. REMERON SOLTAB [Suspect]
     Indication: DEPRESSION
     Dosage: 45 MG DAILY
     Dates: start: 20040209
  2. REMERON SOLTAB [Suspect]
     Indication: DEPRESSION
     Dosage: 37.5 MG DAILY
     Dates: start: 20070803, end: 20070809
  3. REMERON SOLTAB [Suspect]
     Indication: DEPRESSION
     Dosage: 30 MG DAILY
     Dates: start: 20070810, end: 20070816
  4. REMERON SOLTAB [Suspect]
     Indication: DEPRESSION
     Dosage: 22.5 MG DAILY
     Dates: start: 20070817, end: 20070822
  5. REMERON SOLTAB [Suspect]
     Indication: DEPRESSION
     Dosage: 15 MG DAILY
     Dates: start: 20070823, end: 20070828
  6. REMERON SOLTAB [Suspect]
     Indication: DEPRESSION
  7. PLAVIX [Concomitant]
  8. NAMENDA [Concomitant]
  9. ARICEPT [Concomitant]
  10. LEVAQUIN [Concomitant]

REACTIONS (1)
  - CONVULSION [None]
